FAERS Safety Report 6295054-4 (Version None)
Quarter: 2009Q3

REPORT INFORMATION
  Report Type: 
  Country: None (occurrence: None)
  Receive Date: 20090730
  Receipt Date: 20090701
  Transmission Date: 20100115
  Serious: Yes (Other)
  Sender: FDA-Public Use
  Company Number: 2008-1826

PATIENT
  Age: 34 Year
  Sex: Female

DRUGS (1)
  1. DYSPORT [Suspect]
     Indication: SKIN WRINKLING
     Dosage: (83 UNITS,SINGLE CYCLE); SUBCUTANEOUS
     Route: 058

REACTIONS (3)
  - EYE SWELLING [None]
  - FOREIGN BODY SENSATION IN EYES [None]
  - SWELLING FACE [None]
